FAERS Safety Report 16863001 (Version 1)
Quarter: 2019Q3

REPORT INFORMATION
  Report Type: Spontaneous
  Country: NL (occurrence: NL)
  Receive Date: 20190927
  Receipt Date: 20190927
  Transmission Date: 20191005
  Serious: Yes (Other)
  Sender: FDA-Public Use
  Company Number: NL-009507513-1909NLD008680

PATIENT
  Age: 57 Year
  Sex: Male

DRUGS (2)
  1. SINEMET [Suspect]
     Active Substance: CARBIDOPA\LEVODOPA
     Indication: PARKINSON^S DISEASE
     Dosage: 32 TABLETS PER DAY
     Route: 048
  2. SINEMET [Suspect]
     Active Substance: CARBIDOPA\LEVODOPA
     Indication: PARKINSON^S DISEASE
     Dosage: UNK
     Route: 048

REACTIONS (7)
  - Drug ineffective [Unknown]
  - Adverse event [Unknown]
  - Product availability issue [Unknown]
  - Overdose [Unknown]
  - Parkinson^s disease [Unknown]
  - Therapeutic product effect variable [Unknown]
  - Product size issue [Unknown]
